FAERS Safety Report 17058936 (Version 4)
Quarter: 2020Q2

REPORT INFORMATION
  Report Type: Spontaneous
  Country: US (occurrence: US)
  Receive Date: 20191121
  Receipt Date: 20200608
  Transmission Date: 20200713
  Serious: No
  Sender: FDA-Public Use
  Company Number: US-PFIZER INC-2019500961

PATIENT
  Age: 58 Year
  Sex: Female
  Weight: 78.02 kg

DRUGS (2)
  1. SKELAXIN [Suspect]
     Active Substance: METAXALONE
     Indication: MUSCLE SPASMS
     Dosage: 2400 MG, DAILY (3 TABLETS, DAILY)
     Dates: start: 2007, end: 2012
  2. SKELAXIN [Suspect]
     Active Substance: METAXALONE
     Dosage: 1600 MG, DAILY (2 TABLETS DAILY)
     Dates: start: 202005

REACTIONS (2)
  - Intentional product use issue [Unknown]
  - Thinking abnormal [Unknown]

NARRATIVE: CASE EVENT DATE: 202005
